FAERS Safety Report 23069726 (Version 3)
Quarter: 2023Q4

REPORT INFORMATION
  Report Type: Report from Study
  Country: AU (occurrence: AU)
  Receive Date: 20231016
  Receipt Date: 20231117
  Transmission Date: 20240110
  Serious: Yes (Hospitalization)
  Sender: FDA-Public Use
  Company Number: AU-JNJFOC-20230923810

PATIENT
  Age: 48 Year
  Sex: Male
  Weight: 94 kg

DRUGS (21)
  1. AMIVANTAMAB [Suspect]
     Active Substance: AMIVANTAMAB
     Indication: Non-small cell lung cancer
     Route: 058
     Dates: start: 20230727, end: 20230907
  2. ESCITALOPRAM [Concomitant]
     Active Substance: ESCITALOPRAM OXALATE
     Indication: Depression
     Route: 048
     Dates: start: 20220101
  3. ESCITALOPRAM [Concomitant]
     Active Substance: ESCITALOPRAM OXALATE
     Indication: Anxiety
  4. VITAMIN E [Concomitant]
     Active Substance: .ALPHA.-TOCOPHEROL
     Indication: Prophylaxis
     Route: 048
     Dates: start: 20230501
  5. COD LIVER OIL [Concomitant]
     Active Substance: COD LIVER OIL
     Indication: Prophylaxis
     Route: 048
     Dates: start: 20230501
  6. TRESOS ACTIVATED B PLUSE [Concomitant]
     Indication: Prophylaxis
     Route: 048
     Dates: start: 20230501
  7. MANUKA HONEY [Concomitant]
     Indication: Prophylaxis
     Route: 048
     Dates: start: 20230501
  8. ERGOCALCIFEROL [Concomitant]
     Active Substance: ERGOCALCIFEROL
     Indication: Prophylaxis
     Route: 048
     Dates: start: 20230501
  9. OXYCODONE [Concomitant]
     Active Substance: OXYCODONE
     Indication: Flank pain
     Route: 048
     Dates: start: 20230601
  10. NALOXONE HYDROCHLORIDE\OXYCODONE HYDROCHLORIDE [Concomitant]
     Active Substance: NALOXONE HYDROCHLORIDE\OXYCODONE HYDROCHLORIDE
     Indication: Flank pain
     Dosage: 10/5
     Route: 048
     Dates: start: 20230726
  11. ESOMEPRAZOLE [Concomitant]
     Active Substance: ESOMEPRAZOLE
     Indication: Gastrooesophageal reflux disease
     Route: 048
     Dates: start: 20230806, end: 20230912
  12. MINOCYCLINE [Concomitant]
     Active Substance: MINOCYCLINE HYDROCHLORIDE
     Indication: Dermatitis acneiform
     Route: 048
     Dates: start: 20230824
  13. APIXABAN [Concomitant]
     Active Substance: APIXABAN
     Indication: Thrombosis prophylaxis
     Route: 048
     Dates: start: 20230727
  14. BETAMETHASONE VALERATE [Concomitant]
     Active Substance: BETAMETHASONE VALERATE
     Indication: Dermatitis acneiform
     Route: 061
     Dates: start: 20230824
  15. FENTANYL [Concomitant]
     Active Substance: FENTANYL\FENTANYL CITRATE
     Indication: Anaesthesia
     Route: 042
     Dates: start: 20230913, end: 20230913
  16. MIDAZOLAM [Concomitant]
     Active Substance: MIDAZOLAM
     Indication: Anaesthesia
     Route: 042
     Dates: start: 20230913, end: 20230913
  17. PROPOFOL [Concomitant]
     Active Substance: PROPOFOL
     Indication: Anaesthesia
     Route: 042
     Dates: start: 20230913, end: 20230913
  18. ISOTRETINOIN [Concomitant]
     Active Substance: ISOTRETINOIN
     Indication: Dermatitis acneiform
     Route: 048
     Dates: start: 20231005, end: 20231010
  19. PREDNISOLONE [Concomitant]
     Active Substance: PREDNISOLONE
     Indication: Dermatitis acneiform
     Route: 048
     Dates: start: 20231005
  20. LORATADINE [Concomitant]
     Active Substance: LORATADINE
     Indication: Dermatitis acneiform
     Route: 048
     Dates: start: 20230804
  21. ALGINIC ACID\ALUMINUM HYDROXIDE\MAGNESIUM TRISILICATE [Concomitant]
     Active Substance: ALGINIC ACID\ALUMINUM HYDROXIDE\MAGNESIUM TRISILICATE
     Indication: Gastrooesophageal reflux disease
     Route: 048
     Dates: start: 20230805

REACTIONS (1)
  - Haematemesis [Not Recovered/Not Resolved]

NARRATIVE: CASE EVENT DATE: 20230912
